FAERS Safety Report 5752940-9 (Version None)
Quarter: 2008Q2

REPORT INFORMATION
  Report Type: 
  Country: None (occurrence: None)
  Receive Date: 20080527
  Receipt Date: 20080519
  Transmission Date: 20081010
  Serious: Yes (Death, Other)
  Sender: FDA-Public Use
  Company Number: 150-C5013-08020041

PATIENT
  Age: 81 Year
  Sex: Female
  Weight: 68 kg

DRUGS (6)
  1. CC-5013 (LENALIDOMIDE)   (CAPSULES) [Suspect]
     Indication: 5Q-SYNDROME
     Dosage: 5 MG, 1 IN 1 D, ORAL
     Route: 048
     Dates: start: 20060627, end: 20070819
  2. COLECALCIFEROL  (COLECALCIFEROL) [Concomitant]
  3. ASPIRIN [Concomitant]
  4. LEVOTHYROXINE SODIUM [Concomitant]
  5. GABAPENTIN [Concomitant]
  6. ACETAMINOPHEN [Concomitant]

REACTIONS (3)
  - CLONAL EVOLUTION [None]
  - DISEASE PROGRESSION [None]
  - THROMBOCYTOPENIA [None]
